FAERS Safety Report 8813598 (Version 1)
Quarter: 2012Q4

REPORT INFORMATION
  Report Type: 
  Country: US (occurrence: US)
  Receive Date: 20120927
  Receipt Date: 20120927
  Transmission Date: 20130627
  Serious: Yes (Hospitalization)
  Sender: FDA-Public Use
  Company Number: US-BAYER-2012-100355

PATIENT
  Age: 22 Year
  Sex: Female

DRUGS (3)
  1. YASMIN [Suspect]
     Indication: AMENORRHOEA
     Dosage: UNK
     Dates: start: 20060201
  2. CLARITIN [Concomitant]
  3. PERCOCET [Concomitant]
     Indication: PAIN
     Dosage: UNK UNK, PRN

REACTIONS (5)
  - Pulmonary embolism [None]
  - Deep vein thrombosis [None]
  - Oedema peripheral [None]
  - Hyperhidrosis [None]
  - Dyspnoea [None]
